FAERS Safety Report 8597651-X (Version None)
Quarter: 2012Q3

REPORT INFORMATION
  Report Type: 
  Country: None (occurrence: None)
  Receive Date: 20120816
  Receipt Date: 20120808
  Transmission Date: 20120928
  Serious: Yes (Other)
  Sender: FDA-Public Use
  Company Number: DE-PFIZER INC-2012194110

PATIENT
  Age: 62 Year
  Sex: Female

DRUGS (3)
  1. LYRICA [Suspect]
     Indication: BACK PAIN
     Dosage: UNK
     Dates: start: 20100101
  2. BACLOFEN [Suspect]
     Indication: BACK PAIN
     Dosage: UNK
     Dates: start: 20120501
  3. FENTANYL [Suspect]
     Dosage: 75 MG, EVERY 3 DAYS
     Dates: start: 20100101

REACTIONS (1)
  - ASTHMA [None]
